FAERS Safety Report 16814541 (Version 1)
Quarter: 2019Q3

REPORT INFORMATION
  Report Type: Spontaneous
  Country: US (occurrence: US)
  Receive Date: 20190917
  Receipt Date: 20190917
  Transmission Date: 20191005
  Serious: No
  Sender: FDA-Public Use
  Company Number: US-ALLERGAN-1848903US

PATIENT
  Age: 59 Year
  Sex: Female

DRUGS (5)
  1. AMITIZA [Concomitant]
     Active Substance: LUBIPROSTONE
     Indication: CONSTIPATION
     Route: 048
  2. UNSPECIFIED HYPOTHYROID MEDICATION [Concomitant]
     Active Substance: UNSPECIFIED INGREDIENT
     Indication: HYPOTHYROIDISM
  3. MIRALAX [Concomitant]
     Active Substance: POLYETHYLENE GLYCOL 3350
     Indication: CONSTIPATION
     Route: 048
  4. LINZESS [Suspect]
     Active Substance: LINACLOTIDE
     Indication: CONSTIPATION
     Dosage: 145 MCG QAM  BEFORE BREAKFAST
     Route: 048
  5. UNSPECIFIED SKIN STEROID CREAMS [Concomitant]
     Indication: SKIN DISORDER

REACTIONS (5)
  - Incorrect dose administered [Unknown]
  - Wrong technique in product usage process [Unknown]
  - Product formulation issue [Unknown]
  - Diarrhoea [Not Recovered/Not Resolved]
  - Drug ineffective [Unknown]
